FAERS Safety Report 5471940-X (Version None)
Quarter: 2007Q3

REPORT INFORMATION
  Report Type: 
  Country: None (occurrence: None)
  Receive Date: 20070928
  Receipt Date: 20070918
  Transmission Date: 20080115
  Serious: Yes (Other)
  Sender: FDA-Public Use
  Company Number: JP-PFIZER INC-2007066896

PATIENT
  Sex: Male
  Weight: 49.6 kg

DRUGS (8)
  1. ZOLOFT [Suspect]
     Indication: DEPRESSION
     Dosage: DAILY DOSE:25MG
     Route: 048
  2. TEGRETOL [Suspect]
     Indication: NEURALGIA
     Route: 048
  3. ZOLPIDEM [Suspect]
     Indication: INSOMNIA
     Route: 048
  4. FENTANYL [Concomitant]
     Route: 062
  5. MOBIC [Concomitant]
     Route: 048
     Dates: start: 20070801
  6. MAGNESIUM OXIDE [Concomitant]
     Route: 048
     Dates: start: 20070720
  7. PURSENNID [Concomitant]
     Route: 048
     Dates: start: 20070720
  8. DOCETAXEL [Concomitant]
     Route: 042
     Dates: start: 20070731, end: 20070731

REACTIONS (5)
  - ABNORMAL BEHAVIOUR [None]
  - DELIRIUM [None]
  - RESTLESSNESS [None]
  - SOMNOLENCE [None]
  - SPEECH DISORDER [None]
